FAERS Safety Report 13705441 (Version 1)
Quarter: 2017Q2

REPORT INFORMATION
  Report Type: Spontaneous
  Country: VN (occurrence: VN)
  Receive Date: 20170630
  Receipt Date: 20170630
  Transmission Date: 20170830
  Serious: Yes (Life-Threatening)
  Sender: FDA-Public Use
  Company Number: VN-TELIGENT, INC-IGIL20170281

PATIENT
  Age: 67 Year
  Sex: Female
  Weight: 47 kg

DRUGS (2)
  1. SODIUM CHLORIDE. [Concomitant]
     Active Substance: SODIUM CHLORIDE
     Indication: PRODUCT USED FOR UNKNOWN INDICATION
     Dosage: 0.9%
     Route: 065
     Dates: start: 20170626
  2. ZINACEF [Suspect]
     Active Substance: CEFUROXIME SODIUM
     Indication: PROPHYLAXIS
     Dosage: 750 MG
     Route: 042
     Dates: start: 20170626, end: 20170626

REACTIONS (6)
  - Rash [Recovered/Resolved]
  - Pruritus [Recovered/Resolved]
  - Hyperhidrosis [Recovered/Resolved]
  - Urinary incontinence [Recovered/Resolved]
  - Vomiting [Recovered/Resolved]
  - Hypotension [Recovered/Resolved]

NARRATIVE: CASE EVENT DATE: 20170626
